FAERS Safety Report 18590607 (Version 2)
Quarter: 2021Q3

REPORT INFORMATION
  Report Type: Spontaneous
  Country: TR (occurrence: TR)
  Receive Date: 20201208
  Receipt Date: 20210814
  Transmission Date: 20211014
  Serious: Yes (Hospitalization, Other)
  Sender: FDA-Public Use
  Company Number: TR-TEVA-2020-TR-1856151

PATIENT
  Age: 78 Year
  Sex: Male

DRUGS (2)
  1. GEMCITABINE. [Suspect]
     Active Substance: GEMCITABINE
     Indication: NEUROFIBROSARCOMA
     Dosage: ON DAYS 1, 8 AND 15 OF 28 CYCLE
     Route: 065
  2. PACLITAXEL. [Suspect]
     Active Substance: PACLITAXEL
     Indication: NEUROFIBROSARCOMA
     Dosage: ON DAYS 1, 8 AND 15 OF 28 CYCLE
     Route: 065

REACTIONS (3)
  - Bronchiectasis [Unknown]
  - Interstitial lung disease [Unknown]
  - Hypersensitivity pneumonitis [Recovered/Resolved]
